FAERS Safety Report 4762606-X (Version None)
Quarter: 2005Q3

REPORT INFORMATION
  Report Type: 
  Country: None (occurrence: None)
  Receive Date: 20050907
  Receipt Date: 20050830
  Transmission Date: 20060218
  Serious: Yes (Other)
  Sender: FDA-Public Use
  Company Number: US-GLAXOSMITHKLINE-A0572923A

PATIENT
  Age: 30 Year
  Sex: Female

DRUGS (1)
  1. LAMICTAL [Suspect]
     Indication: EPILEPSY
     Route: 048

REACTIONS (4)
  - ABORTION INDUCED [None]
  - ANENCEPHALY [None]
  - DRUG EXPOSURE DURING PREGNANCY [None]
  - LABORATORY TEST ABNORMAL [None]
